FAERS Safety Report 9748393 (Version 1)
Quarter: 2013Q4

REPORT INFORMATION
  Report Type: Spontaneous
  Country: US (occurrence: None)
  Receive Date: 20131206
  Receipt Date: 20131206
  Transmission Date: 20140711
  Serious: Yes (Hospitalization)
  Sender: FDA-Public Use
  Company Number: None

PATIENT
  Age: 77 Year
  Sex: Male
  Weight: 73.25 kg

DRUGS (3)
  1. CARBOPLATIN [Suspect]
  2. CETUXIMAB (ERBITUX) (714692) [Suspect]
  3. PACLITAXEL (TAXOL) [Suspect]

REACTIONS (3)
  - Dehydration [None]
  - Syncope [None]
  - Malignant neoplasm progression [None]
